FAERS Safety Report 21847042 (Version 2)
Quarter: 2023Q1

REPORT INFORMATION
  Report Type: Spontaneous
  Country: US (occurrence: US)
  Receive Date: 20230111
  Receipt Date: 20230121
  Transmission Date: 20230418
  Serious: Yes (Hospitalization, Other)
  Sender: FDA-Public Use
  Company Number: US-MLMSERVICE-20221223-3999388-1

PATIENT
  Age: 48 Year
  Sex: Male

DRUGS (10)
  1. CLOZAPINE [Interacting]
     Active Substance: CLOZAPINE
     Indication: Schizophrenia
     Dosage: 12.5 MILLIGRAM
     Route: 065
  2. CLOZAPINE [Interacting]
     Active Substance: CLOZAPINE
     Dosage: TITRATED UP TO 250 MG/DAY WITH A REDUCTION OF OLANZAPINE DOSE TO 30 MG/DAY IN THE HOSPITAL ON DAY 22
     Route: 065
  3. CLOZAPINE [Interacting]
     Active Substance: CLOZAPINE
     Dosage: 250 MILLIGRAM, ONCE A DAY
     Route: 065
  4. LORAZEPAM [Suspect]
     Active Substance: LORAZEPAM
     Indication: Mental status changes
     Dosage: 2 MILLIGRAM
     Route: 048
  5. OLANZAPINE [Interacting]
     Active Substance: OLANZAPINE
     Indication: Schizophrenia
     Dosage: 5 MILLIGRAM, ONCE A DAY
     Route: 065
  6. OLANZAPINE [Interacting]
     Active Substance: OLANZAPINE
     Indication: Psychotic disorder
     Dosage: 40 MILLIGRAM, ONCE A DAY(OLANZAPINE WAS TITRATED TO 40 MG/DAY ON DAY 6 OF HOSPITALIZATION)
     Route: 065
  7. OLANZAPINE [Interacting]
     Active Substance: OLANZAPINE
     Dosage: 30 MILLIGRAM, ONCE A DAY
     Route: 065
  8. METHAMPHETAMINE [Suspect]
     Active Substance: METHAMPHETAMINE
     Indication: Product used for unknown indication
     Dosage: UNK
     Route: 065
  9. CHLORPROMAZINE [Concomitant]
     Active Substance: CHLORPROMAZINE
     Indication: Agitation
     Dosage: 50 MILLIGRAM
     Route: 065
  10. CHLORPROMAZINE [Concomitant]
     Active Substance: CHLORPROMAZINE
     Dosage: 25 MILLIGRAM
     Route: 030

REACTIONS (7)
  - Memory impairment [Recovered/Resolved]
  - Agitation [Recovered/Resolved]
  - Disorientation [Recovered/Resolved]
  - Somnolence [Recovered/Resolved]
  - Drug interaction [Recovered/Resolved]
  - Disturbance in attention [Recovered/Resolved]
  - Drug ineffective [Unknown]
